FAERS Safety Report 7381611-0 (Version None)
Quarter: 2011Q1

REPORT INFORMATION
  Report Type: 
  Country: None (occurrence: None)
  Receive Date: 20110324
  Receipt Date: 20110324
  Transmission Date: 20110831
  Serious: Yes (Disabling, Other)
  Sender: FDA-Public Use
  Company Number: None

PATIENT
  Sex: Female
  Weight: 111.1313 kg

DRUGS (3)
  1. DIOVAN [Suspect]
     Indication: BLOOD PRESSURE INCREASED
     Dosage: ONE TABLET DAY DAILY FOR YEARS MAKING ME SICK
  2. LIPITOR [Suspect]
  3. LEVOXYL [Suspect]

REACTIONS (7)
  - ARTHRALGIA [None]
  - ALOPECIA [None]
  - NEOPLASM PROGRESSION [None]
  - CARDIAC OPERATION [None]
  - HEART RATE DECREASED [None]
  - MOOD ALTERED [None]
  - PAIN IN EXTREMITY [None]
